FAERS Safety Report 23145360 (Version 5)
Quarter: 2024Q2

REPORT INFORMATION
  Report Type: Spontaneous
  Country: IT (occurrence: IT)
  Receive Date: 20231103
  Receipt Date: 20240513
  Transmission Date: 20240716
  Serious: Yes (Death, Hospitalization)
  Sender: FDA-Public Use
  Company Number: IT-PFIZER INC-202300330960

PATIENT
  Age: 74 Year
  Sex: Female

DRUGS (33)
  1. FLUCONAZOLE [Suspect]
     Active Substance: FLUCONAZOLE
     Indication: Pulmonary sepsis
     Dosage: UNK
     Route: 065
     Dates: start: 202005
  2. FLUCONAZOLE [Suspect]
     Active Substance: FLUCONAZOLE
     Indication: Evidence based treatment
  3. FLUCONAZOLE [Suspect]
     Active Substance: FLUCONAZOLE
     Indication: Fungal infection
  4. ITRACONAZOLE [Suspect]
     Active Substance: ITRACONAZOLE
     Indication: Disseminated mucormycosis
     Dosage: UNK
     Route: 048
     Dates: start: 2020
  5. AMBISOME [Suspect]
     Active Substance: AMPHOTERICIN B
     Indication: Disseminated mucormycosis
     Dosage: 10 MILLIGRAM/KILOGRAM, QD
     Route: 042
     Dates: start: 202007
  6. IBRUTINIB [Suspect]
     Active Substance: IBRUTINIB
     Indication: Chronic lymphocytic leukaemia
     Dosage: UNK
     Route: 065
     Dates: start: 2014, end: 2016
  7. VENETOCLAX [Suspect]
     Active Substance: VENETOCLAX
     Indication: Chronic lymphocytic leukaemia
     Dosage: UNK, CYCLIC
     Route: 065
     Dates: start: 2017, end: 2020
  8. CYCLOPHOSPHAMIDE [Suspect]
     Active Substance: CYCLOPHOSPHAMIDE
     Indication: Chronic lymphocytic leukaemia
     Dosage: UNK, CYCLIC
     Route: 065
     Dates: start: 2006, end: 2006
  9. CYCLOPHOSPHAMIDE [Suspect]
     Active Substance: CYCLOPHOSPHAMIDE
     Dosage: UNK, CYCLIC
     Route: 065
     Dates: start: 2010, end: 2010
  10. FLUDARABINE PHOSPHATE [Suspect]
     Active Substance: FLUDARABINE PHOSPHATE
     Indication: Chronic lymphocytic leukaemia
     Dosage: UNK, CYCLIC
     Route: 065
     Dates: start: 2006
  11. FLUDARABINE PHOSPHATE [Suspect]
     Active Substance: FLUDARABINE PHOSPHATE
     Dosage: UNK, CYCLIC
     Route: 065
     Dates: start: 2010, end: 2010
  12. RITUXIMAB [Suspect]
     Active Substance: RITUXIMAB
     Indication: Chronic lymphocytic leukaemia
     Dosage: UNK, CYCLIC
     Route: 065
     Dates: start: 2006, end: 2006
  13. RITUXIMAB [Suspect]
     Active Substance: RITUXIMAB
     Dosage: UNK, CYCLIC
     Route: 065
     Dates: start: 2010, end: 2010
  14. RITUXIMAB [Suspect]
     Active Substance: RITUXIMAB
     Dosage: UNK, CYCLIC
     Route: 065
     Dates: start: 2012, end: 2012
  15. RITUXIMAB [Suspect]
     Active Substance: RITUXIMAB
     Dosage: UNK, CYCLIC
     Route: 065
     Dates: start: 2020, end: 2020
  16. CASPOFUNGIN [Suspect]
     Active Substance: CASPOFUNGIN
     Indication: Fungal infection
     Dosage: UNK
     Route: 065
     Dates: start: 2020
  17. CASPOFUNGIN [Suspect]
     Active Substance: CASPOFUNGIN
     Indication: Evidence based treatment
  18. IDELALISIB [Suspect]
     Active Substance: IDELALISIB
     Indication: Chronic lymphocytic leukaemia
     Dosage: UNK
     Route: 065
     Dates: start: 2020, end: 2020
  19. IDELALISIB [Suspect]
     Active Substance: IDELALISIB
     Indication: Chronic lymphocytic leukaemia
     Dosage: UNK, CYCLIC
     Route: 065
     Dates: start: 2020, end: 2020
  20. BENDAMUSTINE [Suspect]
     Active Substance: BENDAMUSTINE
     Indication: Chronic lymphocytic leukaemia
     Dosage: UNK, CYCLIC
     Route: 065
     Dates: start: 2013, end: 2013
  21. ZANUBRUTINIB [Suspect]
     Active Substance: ZANUBRUTINIB
     Indication: Chronic lymphocytic leukaemia
     Dosage: UNK, CYCLIC
     Route: 065
     Dates: start: 202005
  22. IMBRUVICA [Suspect]
     Active Substance: IBRUTINIB
     Indication: Chronic lymphocytic leukaemia
     Dosage: UNK, CYCLIC
     Route: 048
     Dates: start: 2014, end: 2016
  23. ITRACONAZOLE [Concomitant]
     Active Substance: ITRACONAZOLE
     Indication: Disseminated mucormycosis
     Dosage: UNK
     Route: 048
     Dates: start: 2020
  24. MEROPENEM [Concomitant]
     Active Substance: MEROPENEM
     Indication: Pulmonary sepsis
     Dosage: UNK
     Route: 065
  25. MEROPENEM [Concomitant]
     Active Substance: MEROPENEM
     Indication: Evidence based treatment
  26. DAPTOMYCIN [Concomitant]
     Active Substance: DAPTOMYCIN
     Indication: Pulmonary sepsis
     Dosage: UNK
     Route: 065
     Dates: start: 2020
  27. DAPTOMYCIN [Concomitant]
     Active Substance: DAPTOMYCIN
     Indication: Evidence based treatment
  28. AMPHOTERICIN B [Concomitant]
     Active Substance: AMPHOTERICIN B
     Indication: Disseminated mucormycosis
     Dosage: 10 MILLIGRAM/KILOGRAM, QD
     Route: 065
     Dates: start: 202007
  29. LEVOFLOXACIN [Concomitant]
     Active Substance: LEVOFLOXACIN
     Indication: Pulmonary sepsis
     Dosage: UNK
     Route: 065
     Dates: start: 2020, end: 2020
  30. LEVOFLOXACIN [Concomitant]
     Active Substance: LEVOFLOXACIN
     Indication: Evidence based treatment
  31. CEFTRIAXONE [Concomitant]
     Active Substance: CEFTRIAXONE\CEFTRIAXONE SODIUM
     Indication: Pulmonary sepsis
     Dosage: UNK
     Route: 065
     Dates: start: 2020, end: 2020
  32. CEFTRIAXONE [Concomitant]
     Active Substance: CEFTRIAXONE\CEFTRIAXONE SODIUM
     Indication: Evidence based treatment
  33. RITUXIMAB [Suspect]
     Active Substance: RITUXIMAB

REACTIONS (5)
  - Disseminated mucormycosis [Fatal]
  - Drug ineffective [Fatal]
  - Pathogen resistance [Fatal]
  - H1N1 influenza [Unknown]
  - Infection [Unknown]

NARRATIVE: CASE EVENT DATE: 20200625
